FAERS Safety Report 5404316-1 (Version None)
Quarter: 2007Q3

REPORT INFORMATION
  Report Type: 
  Country: None (occurrence: None)
  Receive Date: 20070713
  Receipt Date: 20061107
  Transmission Date: 20080115
  Serious: Yes (Hospitalization)
  Sender: FDA-Public Use
  Company Number: REM_00295_2006

PATIENT
  Age: 42 Year
  Sex: Female
  Weight: 97 kg

DRUGS (7)
  1. REMODULIN [Suspect]
     Indication: PULMONARY HYPERTENSION
     Dosage: 12 NG/KG/MIN CONTINUOUS IV
     Route: 042
     Dates: start: 20060106, end: 20060301
  2. TRACLEER [Concomitant]
  3. FLEXERIL [Concomitant]
  4. PERCOCET [Concomitant]
  5. WELLBUTRIN [Concomitant]
  6. PREVACID [Concomitant]
  7. WARFARIN SODIUM [Concomitant]

REACTIONS (1)
  - ENTEROBACTER SEPSIS [None]
